FAERS Safety Report 4991052-9 (Version None)
Quarter: 2006Q2

REPORT INFORMATION
  Report Type: 
  Country: None (occurrence: None)
  Receive Date: 20060503
  Receipt Date: 20051102
  Transmission Date: 20061013
  Serious: Yes (Death, Hospitalization)
  Sender: FDA-Public Use
  Company Number: US-MERCK-0511USA00643

PATIENT
  Age: 49 Year
  Sex: Female
  Weight: 59 kg

DRUGS (31)
  1. VIOXX [Suspect]
     Indication: ARTHRALGIA
     Route: 048
     Dates: start: 20010401, end: 20031001
  2. TYLENOL W/ CODEINE [Concomitant]
     Route: 065
  3. ULTRAM [Concomitant]
     Route: 065
  4. CYCLOBENZAPRINE HYDROCHLORIDE [Concomitant]
     Route: 065
  5. ACETAMINOPHEN AND HYDROCODONE BITARTRATE [Concomitant]
     Route: 065
  6. PREDNISONE [Concomitant]
     Route: 065
  7. LOVENOX [Concomitant]
     Route: 065
  8. AMITRIPTYLINE HYDROCHLORIDE [Concomitant]
     Route: 065
  9. COUMADIN [Concomitant]
     Route: 065
  10. ATIVAN [Concomitant]
     Route: 065
  11. AMBIEN [Concomitant]
     Route: 065
  12. PERCOCET [Concomitant]
     Route: 065
  13. ENDOCET [Concomitant]
     Route: 065
  14. FLOVENT [Concomitant]
     Route: 065
  15. ZITHROMAX [Concomitant]
     Route: 065
  16. DOXYCYCLINE [Concomitant]
     Route: 065
  17. NICODERM CQ [Concomitant]
     Route: 065
  18. CEPHALEXIN [Concomitant]
     Route: 065
  19. LASIX [Concomitant]
     Route: 065
  20. LEVAQUIN [Concomitant]
     Route: 065
  21. OXYCODONE [Concomitant]
     Route: 065
  22. FLONASE [Concomitant]
     Route: 065
  23. DUONEB [Concomitant]
     Route: 065
  24. ADVAIR DISKUS 100/50 [Concomitant]
     Route: 065
  25. BIAXIN [Concomitant]
     Route: 065
  26. NYSTATIN [Concomitant]
     Route: 065
  27. CLONIDINE [Concomitant]
     Route: 065
  28. Q-BID DM [Concomitant]
     Route: 065
  29. METHADONE HYDROCHLORIDE [Concomitant]
     Route: 065
  30. CLARITIN-D [Concomitant]
     Route: 065
  31. SYNTHROID [Concomitant]
     Route: 065

REACTIONS (23)
  - ABDOMINAL HERNIA [None]
  - ABDOMINAL PAIN [None]
  - ACUTE CORONARY SYNDROME [None]
  - ASTHENIA [None]
  - ASTHMA [None]
  - BRAIN STEM SYNDROME [None]
  - BRONCHITIS [None]
  - BRONCHITIS ACUTE [None]
  - CANDIDIASIS [None]
  - CARDIAC ARREST [None]
  - CHRONIC OBSTRUCTIVE PULMONARY DISEASE [None]
  - CONDITION AGGRAVATED [None]
  - COUGH [None]
  - HYPOCOAGULABLE STATE [None]
  - HYPOXIA [None]
  - LOSS OF CONSCIOUSNESS [None]
  - MUSCLE HAEMORRHAGE [None]
  - MYOCARDIAL INFARCTION [None]
  - RENAL DISORDER [None]
  - STATUS ASTHMATICUS [None]
  - SYSTEMIC LUPUS ERYTHEMATOSUS [None]
  - UMBILICAL HERNIA [None]
  - WHITE BLOOD CELL COUNT INCREASED [None]
